FAERS Safety Report 22034573 (Version 1)
Quarter: 2023Q1

REPORT INFORMATION
  Report Type: Spontaneous
  Country: US (occurrence: None)
  Receive Date: 20230224
  Receipt Date: 20230224
  Transmission Date: 20230418
  Serious: Yes (Hospitalization)
  Sender: FDA-Public Use
  Company Number: 2023A042325

PATIENT
  Sex: Male
  Weight: 54.4 kg

DRUGS (46)
  1. NEXIUM [Suspect]
     Active Substance: ESOMEPRAZOLE MAGNESIUM
     Route: 048
  2. DICYCLOMINE [Concomitant]
     Active Substance: DICYCLOMINE HYDROCHLORIDE
  3. FINASTERIDE [Concomitant]
     Active Substance: FINASTERIDE
  4. HYDROCHLOROTHIAZIDE [Concomitant]
     Active Substance: HYDROCHLOROTHIAZIDE
  5. LISINOPRIL [Concomitant]
     Active Substance: LISINOPRIL
  6. LORATADINE [Concomitant]
     Active Substance: LORATADINE
  7. SIMVASTATIN [Concomitant]
     Active Substance: SIMVASTATIN
  8. SUCRALFATE [Concomitant]
     Active Substance: SUCRALFATE
  9. TAMSULOSIN [Concomitant]
     Active Substance: TAMSULOSIN
  10. LIDOCAINE [Concomitant]
     Active Substance: LIDOCAINE
  11. VENLAFAXINE [Concomitant]
     Active Substance: VENLAFAXINE HYDROCHLORIDE
  12. ALUMINIUM HYDROXIDE/SIMETICONE/MAGNESIUM ALUMINUM SILICATE/MAGNESIUM H [Concomitant]
  13. BENZOCAINE [Concomitant]
     Active Substance: BENZOCAINE
  14. SCOPOLAMINE [Concomitant]
     Active Substance: SCOPOLAMINE
  15. PANTOPRAZOLE [Concomitant]
     Active Substance: PANTOPRAZOLE
  16. PROPOFOL [Concomitant]
     Active Substance: PROPOFOL
  17. BUDESONIDE\FORMOTEROL [Concomitant]
     Active Substance: BUDESONIDE\FORMOTEROL
  18. SODIUM CHLORIDE [Concomitant]
     Active Substance: SODIUM CHLORIDE
  19. IOPAMIDOL [Concomitant]
     Active Substance: IOPAMIDOL
  20. DEXTROSE [Concomitant]
     Active Substance: DEXTROSE
  21. VITAMIN B12 [Concomitant]
     Active Substance: CYANOCOBALAMIN
  22. FERRITIN [Concomitant]
     Active Substance: FERRITIN
  23. FOLIC ACID [Concomitant]
     Active Substance: FOLIC ACID
  24. IRON [Concomitant]
     Active Substance: IRON
  25. PREALBUMIN [Concomitant]
  26. POLYETHYLENE GLYCOL [Concomitant]
     Active Substance: POLYETHYLENE GLYCOL
  27. DOCUSATE/SENNA ALEXANDRINA [Concomitant]
  28. ROCURONIUM [Concomitant]
     Active Substance: ROCURONIUM BROMIDE
  29. SUCCINYLCHOLINE [Concomitant]
     Active Substance: SUCCINYLCHOLINE
  30. PROCHLORPERAZINE [Concomitant]
     Active Substance: PROCHLORPERAZINE
  31. HYDROMORPHONE [Concomitant]
     Active Substance: HYDROMORPHONE
  32. GENTAMICIN [Concomitant]
     Active Substance: GENTAMICIN
  33. CHLORHEXIDINE [Concomitant]
     Active Substance: CHLORHEXIDINE
  34. FENTANYL [Concomitant]
     Active Substance: FENTANYL
  35. LABETALOL [Concomitant]
     Active Substance: LABETALOL\LABETALOL HYDROCHLORIDE
  36. VECURONIUM [Concomitant]
     Active Substance: VECURONIUM BROMIDE
  37. ONDANSETRON [Concomitant]
     Active Substance: ONDANSETRON
  38. ALBUTEROL\IPRATROPIUM BROMIDE [Concomitant]
     Active Substance: ALBUTEROL\IPRATROPIUM BROMIDE
  39. BISACODYL [Concomitant]
     Active Substance: BISACODYL
  40. SENNOSIDES [Concomitant]
     Active Substance: SENNOSIDES
  41. ENOXAPARIN [Concomitant]
     Active Substance: ENOXAPARIN
  42. PROSCAR [Concomitant]
     Active Substance: FINASTERIDE
  43. MYCOSTATIN [Concomitant]
     Active Substance: NYSTATIN
  44. ZOFRAN [Concomitant]
     Active Substance: ONDANSETRON HYDROCHLORIDE
  45. CARAFATE [Concomitant]
     Active Substance: SUCRALFATE
  46. HYGROTEN [Concomitant]

REACTIONS (2)
  - Gastric cancer [Unknown]
  - Adenocarcinoma gastric [Unknown]
